FAERS Safety Report 8402841-2 (Version None)
Quarter: 2012Q2

REPORT INFORMATION
  Report Type: 
  Country: None (occurrence: None)
  Receive Date: 20120601
  Receipt Date: 20120523
  Transmission Date: 20120825
  Serious: Yes (Other)
  Sender: FDA-Public Use
  Company Number: US-SHIRE-ALL1-2012-02666

PATIENT
  Age: 18 Year
  Sex: Female

DRUGS (3)
  1. METHOTREXATE [Concomitant]
     Indication: PRODUCT USED FOR UNKNOWN INDICATION
     Dosage: UNK UNK, UNKNOWN
     Route: 065
  2. LIALDA [Suspect]
     Dosage: 1.2 G, 1X/DAY:QD
     Route: 048
     Dates: start: 20120101
  3. LIALDA [Suspect]
     Indication: COLITIS ULCERATIVE
     Dosage: 4.8 G, 1X/DAY:QD (FOUR 1.2 G TABLETS)
     Route: 048
     Dates: start: 20120101, end: 20120101

REACTIONS (3)
  - SUICIDAL IDEATION [None]
  - MIGRAINE [None]
  - DEPRESSION [None]
